FAERS Safety Report 11891242 (Version 4)
Quarter: 2016Q1

REPORT INFORMATION
  Report Type: Report from Study
  Country: NL (occurrence: NL)
  Receive Date: 20160106
  Receipt Date: 20160315
  Transmission Date: 20160526
  Serious: Yes (Death, Hospitalization, Other)
  Sender: FDA-Public Use
  Company Number: PHHY2015NL172145

PATIENT
  Age: 65 Year
  Sex: Male

DRUGS (12)
  1. EUTHYROX [Concomitant]
     Active Substance: LEVOTHYROXINE SODIUM
     Indication: THYROXINE DECREASED
     Dosage: 75 UG, QD
     Route: 048
  2. CALCIUM [Concomitant]
     Active Substance: CALCIUM
     Indication: OSTEOPENIA
     Dosage: 500 MG, QD
     Route: 048
  3. LANTUS [Concomitant]
     Active Substance: INSULIN GLARGINE
     Indication: DIABETES MELLITUS
     Dosage: UNK UNK, QD
     Route: 058
  4. ANDRIOL [Concomitant]
     Active Substance: TESTOSTERONE UNDECANOATE
     Indication: BLOOD TESTOSTERONE DECREASED
     Dosage: 2 DF, BID
     Route: 048
  5. TEMOZOLOMIDE. [Concomitant]
     Active Substance: TEMOZOLOMIDE
     Indication: CHEMOTHERAPY
     Route: 065
  6. NOVORAPID [Concomitant]
     Active Substance: INSULIN ASPART
     Indication: DIABETES MELLITUS
     Dosage: UNK UNK, TID
     Route: 058
  7. SPIRONOLACTONE. [Concomitant]
     Active Substance: SPIRONOLACTONE
     Indication: HYPERTENSION
     Dosage: 25 MG, QD
     Route: 048
  8. ESOMEPRAZOLE [Concomitant]
     Active Substance: ESOMEPRAZOLE
     Indication: HYPERTENSION
     Dosage: 40 MG, QD
     Route: 048
  9. METYRAPONE [Concomitant]
     Active Substance: METYRAPONE
     Indication: PITUITARY-DEPENDENT CUSHING^S SYNDROME
     Dosage: 5 MG, QD
     Route: 065
  10. CAPECITABINE. [Concomitant]
     Active Substance: CAPECITABINE
     Indication: CHEMOTHERAPY
     Route: 065
  11. AMLODIPINE [Concomitant]
     Active Substance: AMLODIPINE BESYLATE
     Indication: HYPERTENSION
     Dosage: 5 MG, QD
     Route: 048
  12. SIGNIFOR [Suspect]
     Active Substance: PASIREOTIDE
     Indication: PITUITARY-DEPENDENT CUSHING^S SYNDROME
     Dosage: 0.9 MG, BID
     Route: 058
     Dates: start: 20130124, end: 20160205

REACTIONS (20)
  - Blood creatinine increased [Unknown]
  - Blood potassium increased [Unknown]
  - Glomerular filtration rate decreased [Unknown]
  - Blood albumin decreased [Unknown]
  - Blood sodium decreased [Unknown]
  - Blood calcium decreased [Unknown]
  - Blood urea increased [Unknown]
  - Blood cholesterol decreased [Unknown]
  - Alanine aminotransferase increased [Unknown]
  - Blood triglycerides increased [Unknown]
  - C-reactive protein increased [Unknown]
  - Blood sodium increased [Unknown]
  - Aspartate aminotransferase increased [Unknown]
  - Jaundice [Unknown]
  - Blood alkaline phosphatase increased [Fatal]
  - Blood bilirubin increased [Unknown]
  - Blood lactate dehydrogenase increased [Unknown]
  - Gamma-glutamyltransferase increased [Fatal]
  - Blood cholesterol increased [Unknown]
  - Blood potassium decreased [Unknown]

NARRATIVE: CASE EVENT DATE: 20130130
